FAERS Safety Report 5148232-1 (Version None)
Quarter: 2006Q4

REPORT INFORMATION
  Report Type: 
  Country: None (occurrence: None)
  Receive Date: 20060918
  Receipt Date: 20060210
  Transmission Date: 20070319
  Serious: Yes (Other)
  Sender: FDA-Public Use
  Company Number: US-JNJFOC-20060103460

PATIENT
  Age: 26 Year
  Sex: Female
  Weight: 41.7309 kg

DRUGS (3)
  1. TOPAMAX [Suspect]
     Indication: EPILEPSY
     Dosage: SEE IMAGE
     Route: 048
     Dates: start: 20051001
  2. TOPAMAX [Suspect]
     Indication: MIGRAINE PROPHYLAXIS
     Dosage: SEE IMAGE
     Route: 048
     Dates: start: 20051001
  3. CITRA (ALL OTHER THEERAPEUTIC PRODUCTS) [Concomitant]

REACTIONS (3)
  - PARAESTHESIA [None]
  - THINKING ABNORMAL [None]
  - WEIGHT DECREASED [None]
